FAERS Safety Report 5948189-7 (Version None)
Quarter: 2008Q4

REPORT INFORMATION
  Report Type: 
  Country: None (occurrence: None)
  Receive Date: 20081111
  Receipt Date: 20081027
  Transmission Date: 20090506
  Serious: Yes (Hospitalization)
  Sender: FDA-Public Use
  Company Number: CH-ELI_LILLY_AND_COMPANY-CH200806001218

PATIENT
  Age: 50 Year
  Sex: Female
  Weight: 50.3 kg

DRUGS (13)
  1. FORTEO [Suspect]
     Indication: OSTEOPOROSIS
     Dosage: UNK, DAILY (1/D)
     Route: 065
  2. NEXIUM [Concomitant]
     Dosage: 20 MG, DAILY (1/D)
     Route: 065
  3. NEXIUM [Concomitant]
     Dosage: 40 MG, DAILY (1/D)
  4. CALCIMAGON [Concomitant]
     Dosage: 500 MG, 2/D
  5. CALCIMAGON [Concomitant]
     Dosage: 500 MG, DAILY (1/D)
     Route: 065
  6. CALCIMAGON [Concomitant]
     Dosage: 500 MG, DAILY (1/D)
  7. BENERVA [Concomitant]
     Dosage: 1 D/F, EACH EVENING
     Route: 065
  8. BENERVA [Concomitant]
     Dosage: 300 MG, DAILY (1/D)
  9. VITAMIN E [Concomitant]
     Dosage: 1 D/F, EACH MORNING
     Route: 065
  10. SIRDALUD [Concomitant]
     Dosage: 2 MG, DAILY (1/D)
     Route: 065
  11. SIRDALUD [Concomitant]
     Dosage: 2 MG, DAILY (1/D)
  12. LEXOTANIL [Concomitant]
     Dosage: 3 D/F, AS NEEDED
     Route: 065
  13. BEROCCA [Concomitant]
     Dosage: UNK, DAILY (1/D)
     Route: 065

REACTIONS (5)
  - CERVIX DISORDER [None]
  - DEGENERATION OF UTERINE FIBROID [None]
  - HYPERTENSION [None]
  - LEUKOCYTOSIS [None]
  - NEPHROLITHIASIS [None]
